FAERS Safety Report 12637425 (Version 1)
Quarter: 2016Q3

REPORT INFORMATION
  Report Type: Spontaneous
  Country: US (occurrence: US)
  Receive Date: 20160809
  Receipt Date: 20160809
  Transmission Date: 20161109
  Serious: No
  Sender: FDA-Public Use
  Company Number: US-BEH-2016061618

PATIENT
  Sex: Female
  Weight: 58 kg

DRUGS (23)
  1. PROBIOTIC [Concomitant]
     Active Substance: PROBIOTICS NOS
  2. EXCEDRIN EXTRA STRENGH [Concomitant]
  3. CITALOPRAM [Concomitant]
     Active Substance: CITALOPRAM HYDROBROMIDE
  4. FIBER [Concomitant]
     Active Substance: PSYLLIUM HUSK
  5. MIGRANAL [Concomitant]
     Active Substance: DIHYDROERGOTAMINE MESYLATE
  6. MELATONIN [Concomitant]
     Active Substance: MELATONIN
  7. EPIPEN [Concomitant]
     Active Substance: EPINEPHRINE
  8. CLONAZEPAM. [Concomitant]
     Active Substance: CLONAZEPAM
  9. ZYRTEC [Concomitant]
     Active Substance: CETIRIZINE HYDROCHLORIDE
  10. LAMOTRIGINE. [Concomitant]
     Active Substance: LAMOTRIGINE
  11. ONDASETRON [Concomitant]
     Active Substance: ONDANSETRON
  12. IRON [Concomitant]
     Active Substance: IRON
  13. IBUPROFEN. [Concomitant]
     Active Substance: IBUPROFEN
  14. AZELASTINE [Concomitant]
     Active Substance: AZELASTINE
  15. ACETAMINOPHEN. [Concomitant]
     Active Substance: ACETAMINOPHEN
  16. DIPHENHYDRAMINE. [Concomitant]
     Active Substance: DIPHENHYDRAMINE
  17. BOTOX [Concomitant]
     Active Substance: ONABOTULINUMTOXINA
  18. SODIUM CHLORIDE. [Concomitant]
     Active Substance: SODIUM CHLORIDE
  19. PRIVIGEN [Suspect]
     Active Substance: HUMAN IMMUNOGLOBULIN G
     Indication: IMMUNODEFICIENCY COMMON VARIABLE
     Route: 042
  20. NASONEX [Concomitant]
     Active Substance: MOMETASONE FUROATE
  21. PROMETHAZINE [Concomitant]
     Active Substance: PROMETHAZINE\PROMETHAZINE HYDROCHLORIDE
  22. GABAPENTIN. [Concomitant]
     Active Substance: GABAPENTIN
  23. PROAIR HFA [Concomitant]
     Active Substance: ALBUTEROL SULFATE

REACTIONS (3)
  - Pain [Unknown]
  - Pyrexia [Unknown]
  - Fatigue [Unknown]
